FAERS Safety Report 18800050 (Version 1)
Quarter: 2021Q1

REPORT INFORMATION
  Report Type: Report from Study
  Country: IT (occurrence: IT)
  Receive Date: 20210128
  Receipt Date: 20210128
  Transmission Date: 20210419
  Serious: Yes (Death, Other)
  Sender: FDA-Public Use
  Company Number: IT-SA-2021SA026872

PATIENT
  Age: 49 Year
  Sex: Male

DRUGS (14)
  1. PREDNISONE. [Concomitant]
     Active Substance: PREDNISONE
  2. TIZANIDINE. [Interacting]
     Active Substance: TIZANIDINE
     Indication: PNEUMONIA BACTERIAL
     Dosage: 2 MG, QD
  3. MORPHINE [Interacting]
     Active Substance: MORPHINE
  4. SODIUM PICOSULFATE [Concomitant]
     Active Substance: SODIUM PICOSULFATE
  5. CIPROFLOXACIN. [Interacting]
     Active Substance: CIPROFLOXACIN
     Indication: PNEUMONIA BACTERIAL
     Dosage: 500 MG, BID
  6. ZOLPIDEM TARTRATE. [Suspect]
     Active Substance: ZOLPIDEM TARTRATE
  7. THIAMINE. [Concomitant]
     Active Substance: THIAMINE
  8. LEVOTHYROXINE. [Concomitant]
     Active Substance: LEVOTHYROXINE
  9. VITAMIN B COMPLEX [Concomitant]
     Active Substance: CYANOCOBALAMIN\DEXPANTHENOL\NIACINAMIDE\PYRIDOXINE HYDROCHLORIDE\RIBOFLAVIN 5^-PHOSPHATE SODIUM\THIAMINE HYDROCHLORIDE\VITAMIN B COMPLEX
  10. OXAZEPAM. [Interacting]
     Active Substance: OXAZEPAM
  11. CLINDAMYCIN. [Concomitant]
     Active Substance: CLINDAMYCIN
  12. GABAPENTIN. [Concomitant]
     Active Substance: GABAPENTIN
  13. ACETYLCYSTEINE. [Concomitant]
     Active Substance: ACETYLCYSTEINE
  14. ESOMEPRAZOLE. [Concomitant]
     Active Substance: ESOMEPRAZOLE MAGNESIUM

REACTIONS (2)
  - Respiratory distress [Fatal]
  - Drug interaction [Fatal]
